FAERS Safety Report 11756532 (Version 7)
Quarter: 2016Q4

REPORT INFORMATION
  Report Type: Report from Study
  Country: CA (occurrence: CA)
  Receive Date: 20151119
  Receipt Date: 20161111
  Transmission Date: 20170206
  Serious: Yes (Hospitalization)
  Sender: FDA-Public Use
  Company Number: CA-ROCHE-ITM201506IM017228

PATIENT
  Age: 73 Year
  Sex: Male

DRUGS (9)
  1. ESBRIET [Suspect]
     Active Substance: PIRFENIDONE
     Indication: IDIOPATHIC PULMONARY FIBROSIS
     Route: 048
     Dates: start: 20150501
  2. ESBRIET [Suspect]
     Active Substance: PIRFENIDONE
     Dosage: 8 CPASULES PER DAY
     Route: 048
     Dates: start: 201603, end: 2016
  3. PREDNISONE. [Concomitant]
     Active Substance: PREDNISONE
  4. ESBRIET [Suspect]
     Active Substance: PIRFENIDONE
     Route: 048
     Dates: start: 20150508
  5. LANSOPRAZOLE. [Concomitant]
     Active Substance: LANSOPRAZOLE
  6. ESBRIET [Suspect]
     Active Substance: PIRFENIDONE
     Route: 048
     Dates: start: 20150515, end: 20150602
  7. ESBRIET [Suspect]
     Active Substance: PIRFENIDONE
     Route: 048
     Dates: start: 20150728
  8. ESBRIET [Suspect]
     Active Substance: PIRFENIDONE
     Route: 048
     Dates: start: 20150805
  9. VITAMIN B12 [Concomitant]
     Active Substance: CYANOCOBALAMIN

REACTIONS (14)
  - Headache [Recovering/Resolving]
  - Asthenia [Recovering/Resolving]
  - Forced vital capacity decreased [Unknown]
  - Insomnia [Recovered/Resolved]
  - Cough [Unknown]
  - Pulmonary function test decreased [Unknown]
  - Nasopharyngitis [Unknown]
  - Productive cough [Recovering/Resolving]
  - Asthenopia [Recovering/Resolving]
  - Pyrexia [Recovering/Resolving]
  - Abdominal discomfort [Unknown]
  - Solar dermatitis [Not Recovered/Not Resolved]
  - Rash [Unknown]
  - Somnolence [Recovering/Resolving]

NARRATIVE: CASE EVENT DATE: 201505
